FAERS Safety Report 16980029 (Version 2)
Quarter: 2019Q4

REPORT INFORMATION
  Report Type: Spontaneous
  Country: US (occurrence: US)
  Receive Date: 20191031
  Receipt Date: 20191230
  Transmission Date: 20200122
  Serious: Yes (Hospitalization)
  Sender: FDA-Public Use
  Company Number: US-MALLINCKRODT-T201905887

PATIENT
  Sex: Female
  Weight: 90 kg

DRUGS (1)
  1. H.P. ACTHAR [Suspect]
     Active Substance: CORTICOTROPIN
     Indication: RHEUMATOID ARTHRITIS
     Dosage: 1 MILLILITER, TWICE A WEEK
     Route: 058
     Dates: start: 201908

REACTIONS (5)
  - Blood glucose fluctuation [Unknown]
  - Pain in extremity [Unknown]
  - Drug ineffective [Unknown]
  - Cholelithiasis [Unknown]
  - Sinusitis [Unknown]

NARRATIVE: CASE EVENT DATE: 2019
